FAERS Safety Report 14538010 (Version 4)
Quarter: 2018Q1

REPORT INFORMATION
  Report Type: Report from Study
  Country: ES (occurrence: ES)
  Receive Date: 20180216
  Receipt Date: 20180302
  Transmission Date: 20180509
  Serious: Yes (Death, Hospitalization)
  Sender: FDA-Public Use
  Company Number: ES-ROCHE-2050962

PATIENT
  Age: 46 Year
  Sex: Male
  Weight: 83 kg

DRUGS (61)
  1. LORAZEPAM. [Concomitant]
     Active Substance: LORAZEPAM
     Indication: PROPHYLAXIS
     Dosage: PROPHYLAXIS INSOMNIA
     Route: 048
     Dates: start: 20180102
  2. LORAZEPAM. [Concomitant]
     Active Substance: LORAZEPAM
     Indication: RASH
     Dosage: PROPHYLAXIS INSOMNIA
     Route: 048
     Dates: start: 20180102, end: 20180104
  3. SALINE [Concomitant]
     Active Substance: SODIUM CHLORIDE
     Indication: DEHYDRATION
     Route: 042
     Dates: start: 20180102, end: 20180104
  4. PANTOPRAZOL [Concomitant]
     Active Substance: PANTOPRAZOLE SODIUM
     Indication: PROPHYLAXIS
     Dosage: PROPHYLAXIS GASTRITIS
     Route: 042
     Dates: start: 20180108, end: 20180113
  5. METOCLOPRAMIDE. [Concomitant]
     Active Substance: METOCLOPRAMIDE
     Dosage: PROPHYLAXIS NAUSEA
     Route: 042
     Dates: start: 20180113, end: 20180115
  6. FLUCONAZOL [Concomitant]
     Active Substance: FLUCONAZOLE
     Dosage: PROPHYLAXIS INFECTION
     Route: 042
     Dates: start: 20180117, end: 20180117
  7. BEVACIZUMAB. [Suspect]
     Active Substance: BEVACIZUMAB
     Indication: COLORECTAL CANCER
     Dosage: DATE OF MOST RECENT DOSE OF BEVACIZUMAB PRIOR TO SAE ONSET: 27/DEC/2017
     Route: 042
     Dates: start: 20171211, end: 20180109
  8. DEXKETOPROFEN [Concomitant]
     Active Substance: DEXKETOPROFEN
     Indication: PROPHYLAXIS
     Dosage: PROPHYLAXIS PAIN
     Route: 048
     Dates: start: 20171211, end: 20180102
  9. DOXYCYCLINE. [Concomitant]
     Active Substance: DOXYCYCLINE
     Indication: RASH
     Route: 048
     Dates: start: 20171227, end: 20180102
  10. FORASEQ [Concomitant]
     Active Substance: BUDESONIDE\FORMOTEROL FUMARATE
     Indication: DIARRHOEA
     Route: 048
     Dates: start: 20171227
  11. CETIRIZINE [Concomitant]
     Active Substance: CETIRIZINE HYDROCHLORIDE
     Route: 048
     Dates: start: 20180102, end: 20180104
  12. SALINE [Concomitant]
     Active Substance: SODIUM CHLORIDE
     Dosage: PROPHYLAXIS DEHYDRATION
     Route: 042
     Dates: start: 20180108, end: 20180111
  13. BETAMETHASONE. [Concomitant]
     Active Substance: BETAMETHASONE
     Indication: RASH
     Dosage: 1 OTHER
     Route: 061
     Dates: start: 20180102, end: 20180104
  14. FITOMENADIONE [Concomitant]
     Dosage: PROPHYLAXIS BLOOD COAGULATION
     Route: 042
     Dates: start: 20180113, end: 20180117
  15. NORADRENALINE [Concomitant]
     Active Substance: NOREPINEPHRINE
     Dosage: CARDIOPULMONARY RESUSCITATION
     Route: 042
     Dates: start: 20180109, end: 20180109
  16. HYDROCORTISONE. [Concomitant]
     Active Substance: HYDROCORTISONE
     Indication: PAIN
     Route: 048
     Dates: start: 20180117, end: 20180117
  17. MAGNESIUM HYDROXIDE. [Concomitant]
     Active Substance: MAGNESIUM HYDROXIDE
     Dosage: PROPHYLAXIS CONSTIPATION?1 OTHER
     Route: 048
     Dates: start: 20180113, end: 20180114
  18. MEROPENEM. [Concomitant]
     Active Substance: MEROPENEM
     Dosage: PROPHYLAXIS INFECTION
     Route: 042
     Dates: start: 20180109, end: 20180116
  19. PARACETAMOL [Concomitant]
     Active Substance: ACETAMINOPHEN
     Dosage: PROPHYLAXIS PAIN
     Route: 042
     Dates: start: 20180109, end: 20180117
  20. CETIRIZINE [Concomitant]
     Active Substance: CETIRIZINE HYDROCHLORIDE
     Indication: RASH
     Route: 048
     Dates: start: 20171227, end: 20180102
  21. PREDNISONE. [Concomitant]
     Active Substance: PREDNISONE
     Indication: RASH
     Route: 048
     Dates: start: 20180104, end: 20180108
  22. CENTELLA ASIATICA [Concomitant]
     Active Substance: CENTELLA ASIATICA
     Indication: RASH
     Dosage: 1 OTHER?EXTO.,/
     Route: 061
     Dates: start: 20180102, end: 20180104
  23. METAMIZOL [Concomitant]
     Active Substance: METAMIZOLE SODIUM
     Indication: PAIN
     Dosage: PROPHYLAXIS INFECTION
     Route: 042
     Dates: start: 20180102, end: 20180104
  24. PIPERACILLIN/TAZOBACTAM [Concomitant]
     Active Substance: PIPERACILLIN SODIUM\TAZOBACTAM SODIUM
     Dosage: PROPHYLAXIS INFECTION
     Route: 042
     Dates: start: 20180108, end: 20180108
  25. MIDAZOLAM [Concomitant]
     Active Substance: MIDAZOLAM HYDROCHLORIDE
     Indication: PAIN
     Route: 042
     Dates: start: 20180119, end: 20180120
  26. ORFIDAL [Concomitant]
     Active Substance: LORAZEPAM
     Route: 048
  27. SYNALAR [Concomitant]
     Active Substance: FLUOCINOLONE ACETONIDE
     Indication: RASH
     Route: 048
     Dates: start: 20171227
  28. PIPERACILLIN/TAZOBACTAM [Concomitant]
     Active Substance: PIPERACILLIN SODIUM\TAZOBACTAM SODIUM
     Dosage: PROPHYLAXIS INFECTION
     Route: 042
     Dates: start: 20180117, end: 20180117
  29. METOCLOPRAMIDE. [Concomitant]
     Active Substance: METOCLOPRAMIDE
     Dosage: PROPHYLAXIS NAUSEA
     Route: 042
     Dates: start: 20180115, end: 20180117
  30. ONDANSETRON [Concomitant]
     Active Substance: ONDANSETRON
     Dosage: PROPHYLAXIS VOMITING
     Route: 042
     Dates: start: 20180111, end: 20180115
  31. NORADRENALINE [Concomitant]
     Active Substance: NOREPINEPHRINE
     Dosage: PROPHYLAXIS CARDIOPULMONARY RESUSCITATION
     Route: 042
     Dates: start: 20180118, end: 20180119
  32. FLUOCINOLONE ACETONIDE. [Concomitant]
     Active Substance: FLUOCINOLONE ACETONIDE
     Indication: RASH
     Dosage: 1 OTHER
     Route: 061
     Dates: start: 20171227, end: 20180102
  33. GLUCOSE [Concomitant]
     Active Substance: DEXTROSE
     Indication: DEHYDRATION
     Route: 042
     Dates: start: 20180102, end: 20180104
  34. AMOXICILLIN/CLAVULANIC ACID [Concomitant]
     Active Substance: AMOXICILLIN\CLAVULANIC ACID
     Indication: PROPHYLAXIS
     Dosage: PROPHYLAXIS INFECTION
     Route: 042
     Dates: start: 20180102, end: 20180104
  35. SEPTRIN FORTE [Concomitant]
     Active Substance: SULFAMETHOXAZOLE\TRIMETHOPRIM
     Indication: RASH
     Route: 048
     Dates: start: 20180104, end: 20180108
  36. FITOMENADIONE [Concomitant]
     Dosage: PROPHYLAXIS BLOOD COAGULATION
     Route: 042
     Dates: start: 20180109, end: 20180110
  37. MORPHINE [Concomitant]
     Active Substance: MORPHINE
     Indication: PAIN
     Route: 042
     Dates: start: 20180108, end: 20180108
  38. ENOXAPARIN [Concomitant]
     Active Substance: ENOXAPARIN
     Dosage: PROPHYLAXIS BLOOD COAGULATION
     Route: 042
     Dates: start: 20180109, end: 20180117
  39. METILPREDNISOLONE [Concomitant]
     Active Substance: METHYLPREDNISOLONE
     Indication: PROPHYLAXIS
     Route: 042
     Dates: start: 20180109, end: 20180116
  40. MICAFUNGINA [Concomitant]
     Active Substance: MICAFUNGIN
     Dosage: PROPHYLAXIS CANDIDA INFECTION
     Route: 042
     Dates: start: 20180117, end: 20180117
  41. MICAFUNGINA [Concomitant]
     Active Substance: MICAFUNGIN
     Dosage: PROPHYLAXIS CANDIDA INFECTION
     Route: 042
     Dates: start: 20180117, end: 20180122
  42. DEXKETOPROFEN [Concomitant]
     Active Substance: DEXKETOPROFEN
     Route: 042
     Dates: start: 20180111, end: 20180116
  43. COBIMETINIB. [Suspect]
     Active Substance: COBIMETINIB
     Indication: COLORECTAL CANCER
     Dosage: DATE OF MOST RECENT DOSE OF COBIMETINIB PRIOR TO AE ONSET: 31/DEC/2017
     Route: 048
     Dates: start: 20171211, end: 20180109
  44. ATEZOLIZUMAB. [Suspect]
     Active Substance: ATEZOLIZUMAB
     Indication: COLORECTAL CANCER
     Dosage: DATE OF MOST RECENT DOSE OF ATEZOLIZUMAB PRIOR TO AE ONSET: 27/DEC/2017
     Route: 042
     Dates: start: 20171211, end: 20180109
  45. PARACETAMOL [Concomitant]
     Active Substance: ACETAMINOPHEN
     Indication: PROPHYLAXIS
     Dosage: PROPHYLAXIS PAIN
     Route: 048
     Dates: start: 20180102, end: 20180104
  46. POLYVINYL ALCOHOL [Concomitant]
     Active Substance: POLYVINYL ALCOHOL
     Indication: PROPHYLAXIS
     Dosage: PROPHYLAXIS DRY EYE
     Route: 047
     Dates: start: 20180102
  47. CODEINE PHOSPHATE, HEMIHYDRATE [Concomitant]
     Indication: PROPHYLAXIS
     Dosage: 2 TBSP (TABLESPOON DOSING UNIT)
     Route: 048
     Dates: start: 20171227, end: 20180102
  48. METOCLOPRAMIDE. [Concomitant]
     Active Substance: METOCLOPRAMIDE
     Indication: PROPHYLAXIS OF NAUSEA AND VOMITING
     Dosage: PROPHYLAXIS NAUSEA
     Route: 042
     Dates: start: 20180111, end: 20180113
  49. METILPREDNISOLONE [Concomitant]
     Active Substance: METHYLPREDNISOLONE
     Route: 042
     Dates: start: 20180116, end: 20180117
  50. DEXKETOPROFEN [Concomitant]
     Active Substance: DEXKETOPROFEN
     Indication: PAIN
     Route: 042
     Dates: start: 20180109, end: 20180111
  51. MORPHINE SULFATE. [Concomitant]
     Active Substance: MORPHINE SULFATE
     Indication: PAIN
     Route: 042
     Dates: start: 20180109, end: 20180113
  52. TRAMADOL. [Concomitant]
     Active Substance: TRAMADOL
     Indication: PAIN
     Route: 042
     Dates: start: 20180111, end: 20180120
  53. ATORVASTATIN [Concomitant]
     Active Substance: ATORVASTATIN
     Indication: DYSLIPIDAEMIA
     Route: 048
     Dates: start: 20171115, end: 20180108
  54. CODEISAN [Concomitant]
     Active Substance: CODEINE PHOSPHATE
     Dosage: 2 TBSP (TABLESPOON DOSING UNIT)
     Route: 048
     Dates: start: 20171227
  55. LOPERAMIDE [Concomitant]
     Active Substance: LOPERAMIDE
     Indication: DIARRHOEA
     Route: 048
     Dates: start: 20171227, end: 20180108
  56. NEOMYCIN. [Concomitant]
     Active Substance: NEOMYCIN
     Indication: RASH
     Dosage: 1 OTHER
     Route: 061
     Dates: start: 20180102, end: 20180104
  57. FITOMENADIONE [Concomitant]
     Dosage: PROPHYLAXIS BLOOD COAGULATION
     Route: 042
     Dates: start: 20180108, end: 20180108
  58. OMEPRAZOL [Concomitant]
     Active Substance: OMEPRAZOLE
     Dosage: PROPHYLAXIS GASTRITIS
     Route: 048
     Dates: start: 20180113, end: 20180115
  59. CIPROFLOXACIN. [Concomitant]
     Active Substance: CIPROFLOXACIN
     Dosage: PROPHYLAXIS INFECTION
     Route: 042
     Dates: start: 20180116, end: 20180117
  60. TEICOPLANINE [Concomitant]
     Active Substance: TEICOPLANIN
     Dosage: PROPHYLAXIS INFECTION
     Route: 042
     Dates: start: 20180119, end: 20180121
  61. METRONIDAZOL [Concomitant]
     Active Substance: METRONIDAZOLE
     Dosage: PROPHYLAXIS INFECTION
     Route: 042
     Dates: start: 20180116, end: 20180117

REACTIONS (2)
  - Gastrointestinal necrosis [Fatal]
  - Hyperbilirubinaemia [Recovered/Resolved]

NARRATIVE: CASE EVENT DATE: 20180102
